FAERS Safety Report 8876356 (Version 1)
Quarter: 2012Q4

REPORT INFORMATION
  Report Type: 
  Country: ZA (occurrence: ZA)
  Receive Date: 20121023
  Receipt Date: 20121023
  Transmission Date: 20130627
  Serious: Yes (Death)
  Sender: FDA-Public Use
  Company Number: ZA-ROCHE-1139017

PATIENT
  Sex: Male

DRUGS (5)
  1. MIRCERA [Suspect]
     Indication: PRODUCT USED FOR UNKNOWN INDICATION
     Route: 058
     Dates: start: 201012, end: 201208
  2. PERINDOPRIL [Concomitant]
     Route: 065
  3. FUROSEMIDE [Concomitant]
     Route: 065
  4. CARLOC [Concomitant]
     Route: 065
  5. TITRALAC [Concomitant]
     Dosage: 2 tablets 3 times a day
     Route: 065

REACTIONS (1)
  - Death [Fatal]
